FAERS Safety Report 5135850-X (Version None)
Quarter: 2006Q4

REPORT INFORMATION
  Report Type: 
  Country: None (occurrence: None)
  Receive Date: 20061020
  Receipt Date: 20051031
  Transmission Date: 20070319
  Serious: Yes (Congenital Anomaly)
  Sender: FDA-Public Use
  Company Number: 2005BH002541

PATIENT
  Age: 1 Day
  Sex: Male
  Weight: 3.18 kg

DRUGS (4)
  1. LORAZEPAM [Suspect]
     Indication: SCHIZOPHRENIA
     Dosage: 0.5 MG; EVERY DAY, TRPL
     Route: 064
     Dates: end: 20050108
  2. HALDOL [Suspect]
     Indication: DRUG USE FOR UNKNOWN INDICATION
     Dosage: 3 MG; EVERY DAY;TRPL
     Route: 064
     Dates: start: 20040601
  3. CANNABIS [Concomitant]
  4. COCAINE [Concomitant]

REACTIONS (2)
  - DRUG EXPOSURE DURING PREGNANCY [None]
  - TALIPES [None]
